FAERS Safety Report 5727493-1 (Version None)
Quarter: 2008Q2

REPORT INFORMATION
  Report Type: 
  Country: None (occurrence: None)
  Receive Date: 20080505
  Receipt Date: 20080421
  Transmission Date: 20081010
  Serious: Yes (Other)
  Sender: FDA-Public Use
  Company Number: US-ROCHE-561497

PATIENT

DRUGS (4)
  1. PYRIMETHAMINE/SULFADOXINE [Suspect]
  2. PYRIMETHAMINE/SULFADOXINE [Suspect]
  3. IRON [Concomitant]
  4. FOLIC ACID [Concomitant]

REACTIONS (2)
  - DEATH NEONATAL [None]
  - SEPSIS [None]
